FAERS Safety Report 6744193-X (Version None)
Quarter: 2010Q2

REPORT INFORMATION
  Report Type: 
  Country: None (occurrence: None)
  Receive Date: 20100527
  Receipt Date: 20100518
  Transmission Date: 20101027
  Serious: Yes (Hospitalization)
  Sender: FDA-Public Use
  Company Number: GB-JNJFOC-20100508728

PATIENT
  Age: 56 Year
  Sex: Male
  Weight: 82.9 kg

DRUGS (2)
  1. REMICADE [Suspect]
     Indication: PSORIASIS
     Route: 042
  2. AMOXICILLIN [Concomitant]

REACTIONS (1)
  - CHEST PAIN [None]
